FAERS Safety Report 5353059-1 (Version None)
Quarter: 2007Q2

REPORT INFORMATION
  Report Type: 
  Country: None (occurrence: None)
  Receive Date: 20070611
  Receipt Date: 20070530
  Transmission Date: 20071010
  Serious: Yes (Other)
  Sender: FDA-Public Use
  Company Number: CA-PFIZER INC-2007044242

PATIENT
  Age: 70 Year
  Sex: Male

DRUGS (4)
  1. SUTENT [Suspect]
     Route: 048
  2. LIPITOR [Concomitant]
     Route: 048
  3. PARIET [Concomitant]
     Route: 048
  4. ACETYLSALICYLIC ACID SRT [Concomitant]
     Dosage: DAILY DOSE:81MG
     Route: 048

REACTIONS (6)
  - BLISTER [None]
  - ECZEMA [None]
  - FEELING HOT AND COLD [None]
  - PARAESTHESIA [None]
  - TONGUE DISORDER [None]
  - YELLOW SKIN [None]
